FAERS Safety Report 25994834 (Version 2)
Quarter: 2025Q4

REPORT INFORMATION
  Report Type: Spontaneous
  Country: US (occurrence: US)
  Receive Date: 20251104
  Receipt Date: 20251111
  Transmission Date: 20260117
  Serious: Yes (Other)
  Sender: ABBVIE
  Company Number: US-ABBVIE-6529242

PATIENT
  Age: 83 Year
  Sex: Male
  Weight: 91 kg

DRUGS (6)
  1. CYCLOSPORINE [Suspect]
     Active Substance: CYCLOSPORINE
     Indication: Dry eye
     Dosage: FORM STRENGTH: 0.05 PERCENT, 1 DROP IN THE MORNING AND EVENING ROA: OPHTHALMIC
     Route: 065
     Dates: start: 202402, end: 202510
  2. VITAMIN B [Concomitant]
     Active Substance: VITAMIN B
     Indication: Asthenia
  3. ASPIRIN [Concomitant]
     Active Substance: ASPIRIN
     Indication: Cardiac disorder
  4. PITAVASTATIN [Concomitant]
     Active Substance: PITAVASTATIN
     Indication: Blood cholesterol
  5. METOPROLOL [Concomitant]
     Active Substance: METOPROLOL
     Indication: Hypertension
  6. REFRESH RELIEVA PF [Concomitant]
     Active Substance: CARBOXYMETHYLCELLULOSE SODIUM\GLYCERIN
     Indication: Dry eye
     Dosage: AS NEEDED ; 1-2 DROPS ON RIGHT EYE ROA: OPHTHALMIC
     Route: 065
     Dates: start: 202510

REACTIONS (2)
  - Macular degeneration [Recovering/Resolving]
  - Drug ineffective [Unknown]

NARRATIVE: CASE EVENT DATE: 20240101
